FAERS Safety Report 6161987-2 (Version None)
Quarter: 2009Q2

REPORT INFORMATION
  Report Type: 
  Country: None (occurrence: None)
  Receive Date: 20090417
  Receipt Date: 20090417
  Transmission Date: 20091009
  Serious: Yes (Other)
  Sender: FDA-Public Use
  Company Number: None

PATIENT
  Age: 65 Year
  Sex: Male
  Weight: 100.2449 kg

DRUGS (2)
  1. RANOLAZINE 500MG CV THEAPEUTICS [Suspect]
     Indication: ANGINA PECTORIS
     Dosage: 500MG BID PO
     Route: 048
     Dates: start: 20090403, end: 20090403
  2. RANOLAZINE 500MG CV THEAPEUTICS [Suspect]
     Indication: ANGINA PECTORIS
     Dosage: 500MG BID PO
     Route: 048
     Dates: start: 20090405, end: 20090408

REACTIONS (3)
  - ACTIVITIES OF DAILY LIVING IMPAIRED [None]
  - FEELINGS OF WORTHLESSNESS [None]
  - SUICIDAL IDEATION [None]
